FAERS Safety Report 13369031 (Version 1)
Quarter: 2017Q1

REPORT INFORMATION
  Report Type: Spontaneous
  Country: US (occurrence: US)
  Receive Date: 20170324
  Receipt Date: 20170324
  Transmission Date: 20170429
  Serious: No
  Sender: FDA-Public Use
  Company Number: US-PFIZER INC-2017118923

PATIENT
  Age: 75 Year
  Sex: Female
  Weight: 61.23 kg

DRUGS (5)
  1. AZITHROMYCIN ANHYDROUS. [Suspect]
     Active Substance: AZITHROMYCIN ANHYDROUS
     Indication: SINUSITIS
     Dosage: 500 MG, DAILY
     Route: 048
     Dates: start: 20161216, end: 201612
  2. AZITHROMYCIN ANHYDROUS. [Suspect]
     Active Substance: AZITHROMYCIN ANHYDROUS
     Dosage: 500 MG, SINGLE
     Route: 048
     Dates: start: 20170106, end: 201701
  3. LEVOTHYROXINE. [Concomitant]
     Active Substance: LEVOTHYROXINE
     Indication: HYPOTHYROIDISM
     Dosage: 100 UG, DAILY
     Route: 048
  4. AZITHROMYCIN ANHYDROUS. [Suspect]
     Active Substance: AZITHROMYCIN ANHYDROUS
     Dosage: 250 MG, DAILY
     Route: 048
     Dates: start: 201612, end: 201612
  5. AZITHROMYCIN ANHYDROUS. [Suspect]
     Active Substance: AZITHROMYCIN ANHYDROUS
     Dosage: 250 MG, DAILY FOR FOUR DAYS
     Route: 048
     Dates: start: 201701

REACTIONS (8)
  - Dysgeusia [Not Recovered/Not Resolved]
  - Dry mouth [Not Recovered/Not Resolved]
  - Blood pH increased [Unknown]
  - Drug ineffective [Recovered/Resolved]
  - Dry throat [Not Recovered/Not Resolved]
  - Eructation [Unknown]
  - Ageusia [Not Recovered/Not Resolved]
  - Gastric pH decreased [Recovered/Resolved]

NARRATIVE: CASE EVENT DATE: 201612
